FAERS Safety Report 5447700-2 (Version None)
Quarter: 2007Q3

REPORT INFORMATION
  Report Type: 
  Country: None (occurrence: None)
  Receive Date: 20070910
  Receipt Date: 20070831
  Transmission Date: 20080115
  Serious: Yes (Other)
  Sender: FDA-Public Use
  Company Number: US-JNJFOC-20070901414

PATIENT
  Sex: Female
  Weight: 81.65 kg

DRUGS (7)
  1. FENTANYL TRANSDERMAL SYSTEM [Suspect]
     Route: 062
  2. FENTANYL TRANSDERMAL SYSTEM [Suspect]
     Route: 062
  3. FENTANYL TRANSDERMAL SYSTEM [Suspect]
     Indication: BACK PAIN
     Route: 062
  4. PREDNISONE [Concomitant]
     Indication: BEHCET'S SYNDROME
     Dosage: 10 TO 30MG, 1 TO 3 TIMES DAILY
     Route: 048
  5. PERCOCET [Concomitant]
     Indication: PAIN
     Dosage: 10/325MG
     Route: 048
  6. ACTIQ [Concomitant]
     Indication: PAIN
     Dosage: 3-4 TIMES DAILY
     Route: 048
  7. SOMA [Concomitant]
     Indication: MUSCLE SPASMS
     Dosage: AS NEEDED
     Route: 048

REACTIONS (5)
  - DEHYDRATION [None]
  - DISTURBANCE IN SOCIAL BEHAVIOUR [None]
  - DRUG INEFFECTIVE [None]
  - HYPERHIDROSIS [None]
  - URINARY TRACT INFECTION [None]
